FAERS Safety Report 8511703-1 (Version None)
Quarter: 2012Q3

REPORT INFORMATION
  Report Type: 
  Country: None (occurrence: None)
  Receive Date: 20120716
  Receipt Date: 20120712
  Transmission Date: 20120928
  Serious: Yes (Death, Hospitalization)
  Sender: FDA-Public Use
  Company Number: SE-B.I. PHARMACEUTICALS,INC./RIDGEFIELD-2012-SW-00567SW

PATIENT
  Sex: Female

DRUGS (3)
  1. ASPIRIN [Concomitant]
     Indication: CEREBRAL INFARCTION
     Dates: start: 20120401
  2. PERSANTINE [Suspect]
     Indication: CEREBRAL INFARCTION
     Route: 048
     Dates: start: 20120401, end: 20120401
  3. LEVOTHYROXINE SODIUM [Concomitant]
     Indication: HYPOTHYROIDISM

REACTIONS (4)
  - DEATH [None]
  - DIARRHOEA [None]
  - NAUSEA [None]
  - VOMITING [None]
